FAERS Safety Report 6577262-8 (Version None)
Quarter: 2010Q1

REPORT INFORMATION
  Report Type: 
  Country: None (occurrence: None)
  Receive Date: 20100210
  Receipt Date: 20100129
  Transmission Date: 20100710
  Serious: Yes (Death)
  Sender: FDA-Public Use
  Company Number: JP-BAXTER-2010BH002297

PATIENT
  Sex: Female
  Weight: 40 kg

DRUGS (2)
  1. EXTRANEAL [Suspect]
     Indication: RENAL FAILURE
     Route: 033
     Dates: start: 20080911, end: 20100128
  2. DIANEAL 137 W/ DEXTROSE 2.5% IN PLASTIC CONTAINER [Suspect]
     Indication: RENAL FAILURE
     Route: 033
     Dates: start: 20080911, end: 20100128

REACTIONS (2)
  - CARDIAC FAILURE [None]
  - HYPOTENSION [None]
